FAERS Safety Report 23307653 (Version 3)
Quarter: 2024Q1

REPORT INFORMATION
  Report Type: Spontaneous
  Country: CH (occurrence: CH)
  Receive Date: 20231218
  Receipt Date: 20240110
  Transmission Date: 20240409
  Serious: Yes (Other)
  Sender: FDA-Public Use
  Company Number: CH-MYLANLABS-2023M1132261

PATIENT
  Age: 18 Year
  Sex: Male

DRUGS (3)
  1. FLUVOXAMINE MALEATE [Suspect]
     Active Substance: FLUVOXAMINE MALEATE
     Indication: Product used for unknown indication
     Dosage: 1 DOSAGE FORM, BID (1 TABLET MORNING AND EVENING)
     Route: 065
     Dates: start: 20220309, end: 20231127
  2. FLUVOXAMINE MALEATE [Suspect]
     Active Substance: FLUVOXAMINE MALEATE
     Dosage: 50 MG, BID (2 TABLETS MORNING AND EVENING)
     Route: 065
  3. FLUVOXAMINE [Suspect]
     Active Substance: FLUVOXAMINE
     Indication: Depression
     Dosage: 1 DOSAGE FORM, BID (1 TABLET MORNING AND EVENING)
     Route: 065
     Dates: end: 20231205

REACTIONS (4)
  - Suicidal ideation [Recovered/Resolved]
  - Disease recurrence [Recovering/Resolving]
  - Product availability issue [Unknown]
  - Product substitution issue [Unknown]

NARRATIVE: CASE EVENT DATE: 20231128
